FAERS Safety Report 9782062 (Version 1)
Quarter: 2013Q4

REPORT INFORMATION
  Report Type: Report from Study
  Country: US (occurrence: US)
  Receive Date: 20131226
  Receipt Date: 20131226
  Transmission Date: 20140711
  Serious: Yes (Death)
  Sender: FDA-Public Use
  Company Number: US-ROCHE-1325051

PATIENT
  Age: 49 Year
  Sex: Male
  Weight: 76.73 kg

DRUGS (38)
  1. XELODA [Suspect]
     Indication: COLON CANCER METASTATIC
     Route: 048
     Dates: start: 20111114
  2. AVASTIN [Suspect]
     Indication: COLON CANCER METASTATIC
     Route: 042
     Dates: start: 20111114
  3. AVASTIN [Suspect]
     Dosage: 28/NOV/2011, 14/DEC/2011, 28/DEC/2011, 11/JAN/2012, 27/JAN/2012,
     Route: 042
  4. AVASTIN [Suspect]
     Dosage: 10/FEB/2012, 22/FEB/2012.
     Route: 042
  5. AVASTIN [Suspect]
     Dosage: 16/MAR/2012
     Route: 042
  6. AVASTIN [Suspect]
     Dosage: 30/MAR/2012, 11/APR/2012, 25/APR/2012, 08/MAY/212, 04/JUN/2012, 18/JUN/2012.
     Route: 042
  7. SODIUM CHLORIDE [Concomitant]
     Route: 042
  8. ATIVAN [Concomitant]
     Route: 042
  9. IRINOTECAN [Concomitant]
     Route: 042
  10. IRINOTECAN [Concomitant]
     Route: 042
  11. ATROPINE [Concomitant]
     Route: 042
  12. PALONOSETRON [Concomitant]
     Route: 042
  13. DECADRON [Concomitant]
     Dosage: 10-20MG
     Route: 042
  14. BENADRYL (UNITED STATES) [Concomitant]
     Route: 042
  15. EMEND [Concomitant]
     Route: 042
  16. FAMOTIDINE [Concomitant]
     Route: 042
  17. RANITIDINE [Concomitant]
     Route: 042
  18. DILAUDID [Concomitant]
     Indication: PAIN
     Dosage: 2 TO 3 EVERY 3 TO 4 HOURS AS NEEDED
     Route: 048
  19. DILAUDID [Concomitant]
     Dosage: 2 TO 3 EVERY 3 TO 4 HOURS AS NEEDED
     Route: 048
  20. DURAGESIC [Concomitant]
     Route: 062
  21. DURAGESIC [Concomitant]
     Route: 062
  22. DEPAKOTE [Concomitant]
     Route: 048
  23. SEROQUEL [Concomitant]
     Route: 048
  24. ZOLOFT [Concomitant]
     Route: 048
  25. VICODIN [Concomitant]
     Dosage: 5/500MG, 1 TO 2 EVERY 6 HOURS AS NEEDED
     Route: 048
  26. MEGACE ES [Concomitant]
     Dosage: 625/5 ML
     Route: 048
  27. HYDROCORTISONE [Concomitant]
     Dosage: 2 TABLETS IN THE AM AND 1 TABLET IN THE PM
     Route: 048
  28. MAGNESIUM SULFATE [Concomitant]
     Route: 042
  29. CALCIUM CARBONATE [Concomitant]
     Route: 042
  30. LORAZEPAM [Concomitant]
     Dosage: EVERY 6 HOURS AS NEEDED
     Route: 048
  31. MS CONTIN [Concomitant]
     Dosage: EVERY 6 HOURS AS NEEDED
     Route: 048
  32. OXALIPLATIN [Concomitant]
     Route: 042
  33. MORPHINE [Concomitant]
     Route: 042
  34. ZOFRAN [Concomitant]
     Route: 065
  35. TYLENOL [Concomitant]
     Route: 048
  36. DILAUDID [Concomitant]
     Indication: PAIN
     Route: 042
  37. DILAUDID [Concomitant]
     Dosage: 2 TO 3 EVERY 3 TO 4 HOURS AS NEEDED
     Route: 048
  38. FIORINAL WITH CODEINE [Concomitant]
     Route: 065

REACTIONS (28)
  - Death [Fatal]
  - Scrotal pain [Unknown]
  - Temperature intolerance [Unknown]
  - Palmar-plantar erythrodysaesthesia syndrome [Unknown]
  - Chest discomfort [Unknown]
  - Cough [Unknown]
  - Tachycardia [Unknown]
  - Fatigue [Unknown]
  - Breath sounds abnormal [Unknown]
  - Pain [Unknown]
  - Neuropathy peripheral [Unknown]
  - Decreased appetite [Unknown]
  - Mucosal inflammation [Unknown]
  - Diarrhoea [Unknown]
  - Dehydration [Unknown]
  - Joint swelling [Unknown]
  - Flank pain [Unknown]
  - Back pain [Unknown]
  - Weight decreased [Unknown]
  - Testicular pain [Unknown]
  - Abdominal distension [Unknown]
  - Neuropathy peripheral [Unknown]
  - Asthenia [Unknown]
  - Disease progression [Unknown]
  - Pain [Unknown]
  - Abdominal pain lower [Unknown]
  - Pyrexia [Unknown]
  - Abdominal pain [Unknown]
